FAERS Safety Report 9229514 (Version 1)
Quarter: 2013Q2

REPORT INFORMATION
  Report Type: Spontaneous
  Country: NL (occurrence: NL)
  Receive Date: 20130412
  Receipt Date: 20130412
  Transmission Date: 20140414
  Serious: Yes (Hospitalization)
  Sender: FDA-Public Use
  Company Number: NL-009507513-1304NLD005305

PATIENT
  Age: 76 Year
  Sex: Male

DRUGS (6)
  1. FOSAMAX [Suspect]
     Indication: OSTEOPOROSIS
     Dosage: 1 TIMES PER WEEK 70 MG
     Dates: start: 20110207
  2. CALCIUM CARBONATE (+) CHOLECALCIFEROL [Concomitant]
     Dosage: 1 TIMES PER 1 DAYS 1 DF
     Dates: start: 20110418
  3. ASPIRIN [Concomitant]
     Dosage: 1 TIMES PER DAYS 80 MG
     Dates: start: 20080514
  4. ENALAPRIL MALEATE [Concomitant]
     Dosage: 1 TIMES PER 1 DAYS 5 MG
     Route: 048
     Dates: start: 20121205
  5. METFORMIN HYDROCHLORIDE [Concomitant]
     Dosage: 2 TIMES PER 1 DAYS 1000 MG
     Dates: start: 20050616
  6. ATORVASTATIN CALCIUM [Concomitant]
     Dosage: 1 TIMES PER 1 DAYS 20 MG
     Dates: start: 20070622

REACTIONS (1)
  - Pancreatitis acute [Recovered/Resolved]
